FAERS Safety Report 16759732 (Version 8)
Quarter: 2021Q4

REPORT INFORMATION
  Report Type: Report from Study
  Country: CN (occurrence: CN)
  Receive Date: 20190830
  Receipt Date: 20211125
  Transmission Date: 20220303
  Serious: No
  Sender: FDA-Public Use
  Company Number: CN-TESAROUBC-2019-TSO03011-CN

PATIENT

DRUGS (58)
  1. NIRAPARIB [Suspect]
     Active Substance: NIRAPARIB
     Indication: Ovarian cancer
     Dosage: 200 MG, QD
     Dates: start: 20190227, end: 20190706
  2. NIRAPARIB [Suspect]
     Active Substance: NIRAPARIB
     Dosage: 200 MG, QD
     Dates: start: 20190708, end: 20190820
  3. NIRAPARIB [Suspect]
     Active Substance: NIRAPARIB
     Dosage: 200 MG, QD
     Dates: start: 20190913, end: 20200327
  4. NIRAPARIB [Suspect]
     Active Substance: NIRAPARIB
     Dosage: 200 MG, QD
     Dates: start: 20200329, end: 20200401
  5. NIRAPARIB [Suspect]
     Active Substance: NIRAPARIB
     Dosage: 200 MG, QD
     Dates: start: 20200403, end: 20200412
  6. VALSARTAN [Concomitant]
     Active Substance: VALSARTAN
     Indication: Product used for unknown indication
     Dosage: UNK
     Dates: start: 201411
  7. LEVAMLODIPINE BESYLATE [Concomitant]
     Active Substance: LEVAMLODIPINE BESYLATE
     Indication: Product used for unknown indication
     Dosage: UNK
     Dates: start: 201411
  8. NIMODIPINE [Concomitant]
     Active Substance: NIMODIPINE
     Indication: Product used for unknown indication
     Dosage: UNK
     Dates: start: 201411
  9. METFORMIN [Concomitant]
     Active Substance: METFORMIN HYDROCHLORIDE
     Indication: Type 2 diabetes mellitus
     Dosage: UNK
     Dates: start: 20190320, end: 20191210
  10. METFORMIN [Concomitant]
     Active Substance: METFORMIN HYDROCHLORIDE
     Dosage: 0.5 G, TID
     Route: 048
     Dates: start: 20191026, end: 20191103
  11. METFORMIN [Concomitant]
     Active Substance: METFORMIN HYDROCHLORIDE
     Dosage: 0.5 G, TID
     Route: 048
     Dates: start: 20191216, end: 20200208
  12. METFORMIN [Concomitant]
     Active Substance: METFORMIN HYDROCHLORIDE
     Dosage: 0.5 G, BID
     Route: 048
     Dates: start: 20200209, end: 20200406
  13. INSULIN HUMAN [Concomitant]
     Active Substance: INSULIN HUMAN
     Indication: Product used for unknown indication
     Dosage: UNK
     Dates: start: 20190320, end: 20191021
  14. PROTAMINE ZINC INSULIN INJECTION [Concomitant]
     Indication: Product used for unknown indication
     Dosage: UNK
     Dates: start: 20190406, end: 20191210
  15. BISOPROLOL [Concomitant]
     Active Substance: BISOPROLOL
     Indication: Palpitations
     Dosage: UNK
     Dates: start: 20190409, end: 20191102
  16. BISOPROLOL [Concomitant]
     Active Substance: BISOPROLOL
     Dosage: 2.5 MG, QD
     Route: 048
     Dates: start: 20191203
  17. PHOSPHOLIPID [Concomitant]
     Active Substance: PHOSPHOLIPID
     Indication: Product used for unknown indication
     Dosage: UNK
     Dates: start: 20190718, end: 20190812
  18. DIETARY SUPPLEMENT\HERBALS\MILK THISTLE [Concomitant]
     Active Substance: DIETARY SUPPLEMENT\HERBALS\MILK THISTLE
     Indication: Product used for unknown indication
     Dosage: UNK
     Dates: start: 20190718, end: 20190812
  19. BICYCLOL [Concomitant]
     Active Substance: BICYCLOL
     Indication: Prophylaxis
     Dosage: UNK
     Dates: start: 20190817, end: 20191210
  20. BICYCLOL [Concomitant]
     Active Substance: BICYCLOL
     Indication: Drug therapy
     Dosage: 25 MG, BID
     Route: 048
     Dates: start: 20191216, end: 20200302
  21. ASPIRIN [Concomitant]
     Active Substance: ASPIRIN
     Indication: Thrombosis prophylaxis
     Dosage: UNK
     Dates: start: 20190304, end: 20191210
  22. ASPIRIN [Concomitant]
     Active Substance: ASPIRIN
     Dosage: 100 MG, QD
     Route: 048
     Dates: start: 20191216, end: 20200407
  23. RACEANISODAMINE [Concomitant]
     Indication: Abdominal pain
     Dosage: 5 MG, QD
     Route: 048
     Dates: start: 20191017, end: 20191018
  24. RACEANISODAMINE [Concomitant]
     Indication: Intestinal obstruction
     Dosage: 10 MG, QD
     Route: 048
     Dates: start: 20191210, end: 20191210
  25. CEFDINIR [Concomitant]
     Active Substance: CEFDINIR
     Indication: Cough
     Dosage: 50 MG, BID
     Route: 048
     Dates: start: 20191108, end: 20191203
  26. FUDOSTEINE [Concomitant]
     Active Substance: FUDOSTEINE
     Indication: Cough
     Dosage: 0.4 G, TID
     Route: 048
     Dates: start: 20191108, end: 20191210
  27. TELMISARTAN [Concomitant]
     Active Substance: TELMISARTAN
     Indication: Hypertension
     Dosage: 80 MG, QD
     Route: 048
     Dates: start: 20191018, end: 20191026
  28. METFORMIN HYDROCHLORIDE [Concomitant]
     Active Substance: METFORMIN HYDROCHLORIDE
     Indication: Type 2 diabetes mellitus
     Dosage: 0.25 G, TID
     Route: 048
     Dates: start: 20191018, end: 20191023
  29. METFORMIN HYDROCHLORIDE [Concomitant]
     Active Substance: METFORMIN HYDROCHLORIDE
     Dosage: 0.5 G, TID
     Route: 048
     Dates: start: 20191023, end: 20191026
  30. ALANYL GLUTAMINE [Concomitant]
     Active Substance: ALANYL GLUTAMINE
     Indication: Prophylaxis
     Dosage: 20 MG, QD
     Route: 042
     Dates: start: 20191018, end: 20191026
  31. INSULIN GLARGINE [Concomitant]
     Active Substance: INSULIN GLARGINE
     Indication: Type 2 diabetes mellitus
     Dosage: 21 IU, QN, IH
     Route: 048
     Dates: start: 20191022, end: 20191025
  32. INSULIN HUMAN [Concomitant]
     Active Substance: INSULIN HUMAN
     Indication: Type 2 diabetes mellitus
     Dosage: 8 IU, QN IH
     Dates: start: 20191026, end: 20191210
  33. INSULIN HUMAN [Concomitant]
     Active Substance: INSULIN HUMAN
     Dosage: 8 IU, QN IH
     Dates: start: 20191216, end: 20200104
  34. INSULIN ASPART [Concomitant]
     Active Substance: INSULIN ASPART
     Indication: Type 2 diabetes mellitus
     Dosage: UNK, TID
     Route: 042
     Dates: start: 20191018, end: 20191025
  35. POTASSIUM CHLORIDE [Concomitant]
     Active Substance: POTASSIUM CHLORIDE
     Indication: Mineral supplementation
     Dosage: 10 ML, QD
     Route: 042
     Dates: start: 20191018, end: 20191020
  36. POTASSIUM CHLORIDE [Concomitant]
     Active Substance: POTASSIUM CHLORIDE
     Indication: Fluid replacement
     Dosage: 10 ML, BID
     Route: 042
     Dates: start: 20191018, end: 20191020
  37. POTASSIUM CHLORIDE [Concomitant]
     Active Substance: POTASSIUM CHLORIDE
     Dosage: 15 ML, QD
     Route: 042
     Dates: start: 20191018, end: 20191025
  38. POTASSIUM CHLORIDE [Concomitant]
     Active Substance: POTASSIUM CHLORIDE
     Dosage: 20 ML, QD
     Route: 042
     Dates: start: 20191020, end: 20191020
  39. POTASSIUM CHLORIDE [Concomitant]
     Active Substance: POTASSIUM CHLORIDE
     Dosage: 30 ML, QD
     Route: 042
     Dates: start: 20191021, end: 20191021
  40. POTASSIUM CHLORIDE [Concomitant]
     Active Substance: POTASSIUM CHLORIDE
     Dosage: 1 G, TID
     Route: 048
     Dates: start: 20191022, end: 20191025
  41. POTASSIUM CHLORIDE [Concomitant]
     Active Substance: POTASSIUM CHLORIDE
     Dosage: 10 ML, QD
     Route: 042
     Dates: start: 20191210, end: 20191212
  42. DEXTROSE [Concomitant]
     Active Substance: DEXTROSE
     Indication: Fluid replacement
     Dosage: 25 G, QD
     Route: 042
     Dates: start: 20191018, end: 20191020
  43. DEXTROSE [Concomitant]
     Active Substance: DEXTROSE
     Dosage: 25 G, QD
     Route: 042
     Dates: start: 20191018, end: 20191025
  44. VITAMIN C [Concomitant]
     Active Substance: ASCORBIC ACID
     Indication: Fluid replacement
     Dosage: 2 G, QD
     Route: 042
     Dates: start: 20191018, end: 20191025
  45. VITAMIN C [Concomitant]
     Active Substance: ASCORBIC ACID
     Dosage: 3 G, QD
     Route: 042
     Dates: start: 20191210, end: 20191212
  46. INSULIN HUMAN RECOMBINANT [Concomitant]
     Indication: Type 2 diabetes mellitus
     Dosage: 14 IU, BEFORE THREE MEALS
     Dates: start: 20191216, end: 20200103
  47. INSULIN HUMAN RECOMBINANT [Concomitant]
     Dosage: 14-14-14 IU, BEFORE THREE MEALS
     Dates: start: 20200104, end: 20200208
  48. INSULIN HUMAN RECOMBINANT [Concomitant]
     Dosage: 14 IU, BID
     Dates: start: 20200209, end: 20200406
  49. INSULIN HUMAN RECOMBINANT [Concomitant]
     Dosage: 14 IU, TID
     Dates: start: 20200407, end: 20200411
  50. INSULIN HUMAN RECOMBINANT [Concomitant]
     Dosage: 12 IU, TID
     Dates: start: 20200412
  51. CEFAMANDOLE NAFATE [Concomitant]
     Active Substance: CEFAMANDOLE NAFATE
     Indication: Anti-infective therapy
     Dosage: 2 G, BID
     Route: 042
     Dates: start: 20191210, end: 20191216
  52. VITAMIN B6 [Concomitant]
     Active Substance: PYRIDOXINE HYDROCHLORIDE
     Indication: Fluid replacement
     Dosage: 0.3 G, QD
     Route: 042
     Dates: start: 20191210, end: 20191212
  53. SODIUM CHLORIDE + TINIDAZOLE [Concomitant]
     Indication: Anti-infective therapy
     Dosage: 100 ML, BID
     Route: 042
     Dates: start: 20191210, end: 20191216
  54. SERATRODAST [Concomitant]
     Active Substance: SERATRODAST
     Indication: Cough
     Dosage: 80 MG, QD
     Route: 048
     Dates: start: 20191203, end: 20191210
  55. SERATRODAST [Concomitant]
     Active Substance: SERATRODAST
     Dosage: 80 MG, QD
     Route: 048
     Dates: start: 20191216, end: 20200222
  56. DIYUSHENGBAI [Concomitant]
     Indication: Blood disorder prophylaxis
     Dosage: 0.4 G
     Route: 048
     Dates: start: 20200418
  57. GRANULOCYTE COLONY-STIMULATING FACTOR NOS [Concomitant]
     Active Substance: GRANULOCYTE COLONY-STIMULATING FACTOR NOS
     Indication: White blood cell count increased
     Dosage: 100 UG, QD
     Dates: start: 20200424, end: 20200424
  58. OMEPRAZOLE SODIUM [Concomitant]
     Active Substance: OMEPRAZOLE SODIUM
     Indication: Prophylaxis against gastrointestinal ulcer
     Dosage: 40 MG, BID
     Route: 042
     Dates: start: 20191210, end: 20191216

REACTIONS (1)
  - Interstitial lung disease [Recovering/Resolving]

NARRATIVE: CASE EVENT DATE: 20190815
